FAERS Safety Report 7481299-4 (Version None)
Quarter: 2011Q2

REPORT INFORMATION
  Report Type: 
  Country: None (occurrence: None)
  Receive Date: 20110506
  Receipt Date: 20110429
  Transmission Date: 20111010
  Serious: Yes (Hospitalization)
  Sender: FDA-Public Use
  Company Number: UTC-006780

PATIENT
  Age: 57 Year
  Sex: Female

DRUGS (6)
  1. COUMADIN [Concomitant]
  2. REVATIO [Concomitant]
  3. TYVASO [Suspect]
     Indication: SYSTEMIC SCLEROSIS
     Dosage: 3 TO 9 BREATHS PER TREATMENT (4 IN 1 D), INHALATION
     Route: 055
     Dates: start: 20110216
  4. TYVASO [Suspect]
     Indication: PULMONARY ARTERIAL HYPERTENSION
     Dosage: 3 TO 9 BREATHS PER TREATMENT (4 IN 1 D), INHALATION
     Route: 055
     Dates: start: 20110216
  5. LETAIRIS [Concomitant]
  6. DIURETICS (DIURETICS) [Concomitant]

REACTIONS (1)
  - DYSPNOEA [None]
